FAERS Safety Report 13876411 (Version 1)
Quarter: 2017Q3

REPORT INFORMATION
  Report Type: Spontaneous
  Country: IT (occurrence: IT)
  Receive Date: 20170817
  Receipt Date: 20170817
  Transmission Date: 20171127
  Serious: Yes (Hospitalization)
  Sender: FDA-Public Use
  Company Number: IT-FRESENIUS KABI-FK201706942

PATIENT
  Age: 58 Year
  Sex: Female

DRUGS (4)
  1. MEROPENEM. [Concomitant]
     Active Substance: MEROPENEM
     Indication: WOUND INFECTION PSEUDOMONAS
     Route: 065
  2. COLISTIMETHATE (MANUFACTURER UNKNOWN) [Suspect]
     Active Substance: COLISTIMETHATE SODIUM
     Route: 042
  3. COLISTIMETHATE (MANUFACTURER UNKNOWN) [Suspect]
     Active Substance: COLISTIMETHATE SODIUM
     Indication: WOUND INFECTION PSEUDOMONAS
     Route: 042
  4. GENTAMICIN. [Concomitant]
     Active Substance: GENTAMICIN
     Indication: WOUND INFECTION PSEUDOMONAS
     Route: 065

REACTIONS (1)
  - Bartter^s syndrome [Recovered/Resolved]
